FAERS Safety Report 16838707 (Version 1)
Quarter: 2019Q3

REPORT INFORMATION
  Report Type: Report from Study
  Country: US (occurrence: US)
  Receive Date: 20190923
  Receipt Date: 20190923
  Transmission Date: 20191005
  Serious: Yes (Life-Threatening, Hospitalization)
  Sender: FDA-Public Use
  Company Number: US-EMD SERONO-E2B_90070773

PATIENT
  Age: 60 Year
  Sex: Male
  Weight: 68 kg

DRUGS (14)
  1. LEVOTHYROXINE. [Concomitant]
     Active Substance: LEVOTHYROXINE
     Indication: HYPOTHYROIDISM
     Dosage: UNK
     Dates: start: 20190314
  2. METRONIDAZOLE. [Concomitant]
     Active Substance: METRONIDAZOLE
     Indication: WOUND
     Dosage: UNK
     Dates: start: 20180809
  3. CMP 001 [Suspect]
     Active Substance: INVESTIGATIONAL PRODUCT
     Indication: TONSIL CANCER
     Dosage: 10 MG, WEEKLY
     Route: 036
     Dates: start: 20190816
  4. MORPHINE SULFATE. [Concomitant]
     Active Substance: MORPHINE SULFATE
     Indication: PAIN
     Dosage: UNK
     Dates: start: 20180816
  5. NORCO [Concomitant]
     Active Substance: ACETAMINOPHEN\HYDROCODONE BITARTRATE
     Indication: PAIN
     Dosage: UNK
     Dates: start: 20190410
  6. VITAMIN D [Concomitant]
     Active Substance: VITAMIN D NOS
     Indication: ROUTINE HEALTH MAINTENANCE
     Dosage: UNK
     Dates: start: 20160518
  7. PF-05082566 [Suspect]
     Active Substance: UTOMILUMAB
     Indication: TONSIL CANCER
     Dosage: 100 MG, CYCLIC,  ONCE EVERY 4 WEEKS
     Route: 042
     Dates: start: 20190816
  8. IBUPROFEN. [Concomitant]
     Active Substance: IBUPROFEN
     Indication: PAIN
     Dosage: UNK
     Dates: start: 20140505
  9. ZOFRAN [Concomitant]
     Active Substance: ONDANSETRON HYDROCHLORIDE
     Indication: NAUSEA
     Dosage: UNK
     Dates: start: 20190711
  10. GREEN TEA LEAF [Concomitant]
     Active Substance: GREEN TEA LEAF
     Indication: ROUTINE HEALTH MAINTENANCE
     Dosage: UNK
     Dates: start: 20160518
  11. AVELUMAB [Suspect]
     Active Substance: AVELUMAB
     Indication: TONSIL CANCER
     Dosage: 662 MG, CYCLIC, ONCE EVERY 2 WEEKS
     Route: 042
     Dates: start: 20190816
  12. KEPPRA [Concomitant]
     Active Substance: LEVETIRACETAM
     Indication: METASTASES TO CENTRAL NERVOUS SYSTEM
     Dosage: UNK
     Dates: start: 20190407
  13. VITAMIN C [Concomitant]
     Active Substance: ASCORBIC ACID
     Indication: ROUTINE HEALTH MAINTENANCE
     Dosage: UNK
     Dates: start: 20160518
  14. AUGMENTIN [Concomitant]
     Active Substance: AMOXICILLIN\CLAVULANATE POTASSIUM
     Indication: PNEUMONIA
     Dosage: UNK
     Dates: start: 20190827, end: 20190902

REACTIONS (1)
  - Laryngeal oedema [Recovered/Resolved with Sequelae]

NARRATIVE: CASE EVENT DATE: 20190909
